FAERS Safety Report 4599215-1 (Version None)
Quarter: 2005Q1

REPORT INFORMATION
  Report Type: 
  Country: None (occurrence: None)
  Receive Date: 20050127
  Receipt Date: 20041027
  Transmission Date: 20050727
  Serious: No
  Sender: FDA-Public Use
  Company Number: USA041082408

PATIENT
  Age: 12 Year
  Sex: Female
  Weight: 48 kg

DRUGS (1)
  1. STRATTERA [Suspect]
     Indication: ATTENTION DEFICIT/HYPERACTIVITY DISORDER
     Dosage: 60 MG DAY
     Dates: start: 20040601

REACTIONS (11)
  - ABNORMAL BEHAVIOUR [None]
  - APATHY [None]
  - DEPRESSION [None]
  - DISTURBANCE IN ATTENTION [None]
  - DRUG INEFFECTIVE [None]
  - HYPERSOMNIA [None]
  - MENTAL IMPAIRMENT [None]
  - PERIPHERAL COLDNESS [None]
  - SELF ESTEEM DECREASED [None]
  - SLEEP DISORDER [None]
  - SOMNOLENCE [None]
